FAERS Safety Report 25226437 (Version 2)
Quarter: 2025Q2

REPORT INFORMATION
  Report Type: Spontaneous
  Country: JP (occurrence: None)
  Receive Date: 20250422
  Receipt Date: 20250505
  Transmission Date: 20250717
  Serious: Yes (Hospitalization)
  Sender: INCYTE
  Company Number: JP-002147023-NVSJ2025JP004448

PATIENT

DRUGS (1)
  1. RUXOLITINIB [Suspect]
     Active Substance: RUXOLITINIB
     Indication: Myelofibrosis
     Dosage: 5 MILLIGRAM, BID

REACTIONS (3)
  - Fall [Unknown]
  - Fracture [Not Recovered/Not Resolved]
  - Injury [Unknown]
